FAERS Safety Report 7989001-4 (Version None)
Quarter: 2011Q4

REPORT INFORMATION
  Report Type: 
  Country: None (occurrence: None)
  Receive Date: 20111219
  Receipt Date: 20111215
  Transmission Date: 20120403
  Serious: Yes (Death, Other)
  Sender: FDA-Public Use
  Company Number: PHEH2011US01759

PATIENT
  Sex: Female
  Weight: 53.061 kg

DRUGS (5)
  1. METOPROLOL TARTRATE [Concomitant]
     Indication: BLOOD PRESSURE
     Dosage: 25 MG, QD
     Route: 048
  2. EXJADE [Suspect]
     Indication: HAEMOSIDEROSIS
     Dosage: 1000 MG DAILY
     Route: 048
     Dates: start: 20110812, end: 20110917
  3. MAGACE [Concomitant]
     Indication: INCREASED APPETITE
     Dosage: 0.25 MG, QD
     Route: 048
     Dates: start: 20110310
  4. SYNTHROID [Concomitant]
     Indication: HYPOTHYROIDISM
     Dosage: 50 MG, QD
     Route: 048
  5. EXJADE [Suspect]
     Indication: MYELODYSPLASTIC SYNDROME

REACTIONS (3)
  - DIARRHOEA [None]
  - PANCYTOPENIA [None]
  - RASH [None]
